FAERS Safety Report 7819202-7 (Version None)
Quarter: 2011Q4

REPORT INFORMATION
  Report Type: 
  Country: None (occurrence: None)
  Receive Date: 20111018
  Receipt Date: 20111010
  Transmission Date: 20120403
  Serious: Yes (Other)
  Sender: FDA-Public Use
  Company Number: GB-BRISTOL-MYERS SQUIBB COMPANY-16145534

PATIENT
  Age: 54 Year
  Sex: Male

DRUGS (11)
  1. ROSUVASTATIN [Suspect]
  2. AMITRIPTYLINE HCL [Suspect]
  3. METFORMIN HCL [Suspect]
  4. GLICLAZIDE [Suspect]
  5. LEVOTHYROXINE SODIUM [Suspect]
  6. INSULIN GLARGINE [Suspect]
     Dosage: 1DF:116 UNITS
  7. EXENATIDE [Suspect]
     Dosage: DOSE INCREASED TO 10UG, 2X/DAY AFTER FOUR HOURS.
  8. PREGABALIN [Suspect]
  9. CANDESARTAN CILEXETIL [Suspect]
  10. ASPIRIN [Suspect]
  11. QUININE SULFATE [Suspect]

REACTIONS (5)
  - MALAISE [None]
  - GASTROINTESTINAL DISORDER [None]
  - BODY MASS INDEX DECREASED [None]
  - RENAL FAILURE ACUTE [None]
  - NAUSEA [None]
